FAERS Safety Report 22151765 (Version 1)
Quarter: 2023Q1

REPORT INFORMATION
  Report Type: Spontaneous
  Country: US (occurrence: None)
  Receive Date: 20230329
  Receipt Date: 20230329
  Transmission Date: 20230417
  Serious: Yes (Other)
  Sender: FDA-Public Use
  Company Number: 2023A070842

PATIENT
  Sex: Male

DRUGS (4)
  1. LYNPARZA [Suspect]
     Active Substance: OLAPARIB
     Indication: Product used for unknown indication
     Dosage: 2 IN THE MORNING AND ONE IN THE EVENING
     Route: 048
     Dates: start: 2022
  2. LYNPARZA [Suspect]
     Active Substance: OLAPARIB
     Indication: Product used for unknown indication
     Dosage: 2 IN THE MORNING AND 2 IN THE EVENING
     Route: 048
     Dates: start: 2022
  3. LYNPARZA [Suspect]
     Active Substance: OLAPARIB
     Indication: Product used for unknown indication
     Dosage: 2 IN THE MORNING
     Route: 048
  4. ENZALUTAMIDE [Suspect]
     Active Substance: ENZALUTAMIDE
     Indication: Prostate cancer
     Route: 048
     Dates: start: 20211022

REACTIONS (8)
  - Prostatic specific antigen abnormal [Unknown]
  - Dizziness [Unknown]
  - Vertigo [Unknown]
  - Limb discomfort [Unknown]
  - Contusion [Unknown]
  - Pruritus [Unknown]
  - Rash macular [Recovering/Resolving]
  - Underdose [Unknown]
